FAERS Safety Report 4839013-4 (Version None)
Quarter: 2005Q4

REPORT INFORMATION
  Report Type: 
  Country: None (occurrence: None)
  Receive Date: 20051024
  Receipt Date: 20050822
  Transmission Date: 20060501
  Serious: Yes (Other)
  Sender: FDA-Public Use
  Company Number: 2005116703

PATIENT
  Age: 21 Year
  Sex: Female

DRUGS (4)
  1. RELPAX [Suspect]
     Indication: MIGRAINE WITHOUT AURA
     Dosage: 40 MG (40 MG AS NECESSARY), ORAL
     Route: 048
     Dates: start: 20050810, end: 20050810
  2. EFFEXOR [Concomitant]
  3. TRAZODONE HCL [Concomitant]
  4. ZOCOR [Concomitant]

REACTIONS (4)
  - CHEST PAIN [None]
  - DYSPNOEA [None]
  - HYPERSENSITIVITY [None]
  - SWOLLEN TONGUE [None]
